FAERS Safety Report 10074995 (Version 1)
Quarter: 2014Q2

REPORT INFORMATION
  Report Type: Spontaneous
  Country: US (occurrence: US)
  Receive Date: 20140414
  Receipt Date: 20140414
  Transmission Date: 20141212
  Serious: No
  Sender: FDA-Public Use
  Company Number: US-BIOGENIDEC-2014BI028625

PATIENT
  Age: 48 Year
  Sex: Female

DRUGS (2)
  1. TECFIDERA [Suspect]
     Indication: MULTIPLE SCLEROSIS
  2. AVONEX [Concomitant]
     Indication: MULTIPLE SCLEROSIS
     Route: 030

REACTIONS (12)
  - Fall [Recovered/Resolved]
  - Musculoskeletal stiffness [Not Recovered/Not Resolved]
  - Memory impairment [Not Recovered/Not Resolved]
  - Visual impairment [Not Recovered/Not Resolved]
  - Gait disturbance [Not Recovered/Not Resolved]
  - Malaise [Not Recovered/Not Resolved]
  - Pain [Not Recovered/Not Resolved]
  - Dysstasia [Not Recovered/Not Resolved]
  - Pancreatitis [Unknown]
  - General physical health deterioration [Not Recovered/Not Resolved]
  - Nausea [Recovered/Resolved]
  - Multiple sclerosis relapse [Not Recovered/Not Resolved]
